FAERS Safety Report 16248146 (Version 2)
Quarter: 2019Q2

REPORT INFORMATION
  Report Type: Spontaneous
  Country: PL (occurrence: PL)
  Receive Date: 20190428
  Receipt Date: 20190509
  Transmission Date: 20190711
  Serious: Yes (Hospitalization, Other)
  Sender: FDA-Public Use
  Company Number: PL-CELLTRION INC.-2019PL020660

PATIENT

DRUGS (35)
  1. VINBLASTINE [Suspect]
     Active Substance: VINBLASTINE
     Dosage: UNK
  2. DOXORUBICIN [Suspect]
     Active Substance: DOXORUBICIN
     Indication: DIFFUSE LARGE B-CELL LYMPHOMA
     Dosage: 1/1 CYCLE (8 CYCLES, RCHOP THERAPY)
     Route: 065
  3. PIXANTRONE [Concomitant]
     Active Substance: PIXANTRONE
     Indication: DIFFUSE LARGE B-CELL LYMPHOMA
     Dosage: UNK
     Route: 065
  4. CICLOSPORIN [Concomitant]
     Active Substance: CYCLOSPORINE
     Indication: DIFFUSE LARGE B-CELL LYMPHOMA
     Dosage: UNK
     Route: 065
  5. RITUXIMAB (UNKNOWN) [Suspect]
     Active Substance: RITUXIMAB
     Indication: DIFFUSE LARGE B-CELL LYMPHOMA
     Dosage: 375 MG/M2, UNK
     Route: 065
  6. HOLOXAN [Suspect]
     Active Substance: IFOSFAMIDE
     Indication: DIFFUSE LARGE B-CELL LYMPHOMA
     Dosage: PER 1 CYCLE
     Route: 065
  7. BENDAMUSTINE [Concomitant]
     Active Substance: BENDAMUSTINE
     Indication: DIFFUSE LARGE B-CELL LYMPHOMA
     Dosage: CONDITIONING REGIMEN
     Route: 065
  8. PLATINOL [Concomitant]
     Active Substance: CISPLATIN
     Indication: DIFFUSE LARGE B-CELL LYMPHOMA
     Dosage: 1/1 CYCLE (3 CYCLES OF ICE AS MOBILIZATION CHEMOTHERAPY)
     Route: 065
     Dates: start: 201402
  9. BENDAMUSTINE [Concomitant]
     Active Substance: BENDAMUSTINE
     Indication: STEM CELL TRANSPLANT
     Dosage: 200 MG/CYCLE (BETWEEN JULY AND OCTOBER 2016, FOUR CYCLES ON D1 AND D2)
     Route: 065
  10. RITUXIMAB (UNKNOWN) [Suspect]
     Active Substance: RITUXIMAB
     Dosage: 1/1 CYCLE (8 CYCLES, RCHOP THERAPY BETWEEN JANUARY AND JUNE 2013)
     Route: 065
  11. VINBLASTINE [Suspect]
     Active Substance: VINBLASTINE
     Dosage: IMMUNOCHEMOTHERAPY-10MG/DAY
     Route: 065
  12. PREDNISONE. [Suspect]
     Active Substance: PREDNISONE
     Indication: DIFFUSE LARGE B-CELL LYMPHOMA
     Dosage: 100 MG, QD
     Route: 065
  13. MYOCET [Suspect]
     Active Substance: DOXORUBICIN
     Indication: DIFFUSE LARGE B-CELL LYMPHOMA
     Dosage: IMMUNOCHEMOTHERAPY-100 MG/DAY
     Route: 065
  14. ENDOXAN [Suspect]
     Active Substance: CYCLOPHOSPHAMIDE
     Dosage: 1/1 CYCLE (8 CYCLES, RCHOP THERAPY BETWEEN JANUARY AND JUNE 2013)
     Route: 065
  15. METHOTREXATE. [Suspect]
     Active Substance: METHOTREXATE
     Indication: DIFFUSE LARGE B-CELL LYMPHOMA
     Dosage: PER 1 CYCLE (O-IVAC IMMUNOCHEMOTHERAPY)
     Route: 065
  16. METHOTREXATE. [Suspect]
     Active Substance: METHOTREXATE
     Indication: PROPHYLAXIS AGAINST GRAFT VERSUS HOST DISEASE
  17. CICLOSPORIN [Concomitant]
     Active Substance: CYCLOSPORINE
     Indication: PROPHYLAXIS AGAINST GRAFT VERSUS HOST DISEASE
     Dosage: UNK
  18. RITUXIMAB (UNKNOWN) [Suspect]
     Active Substance: RITUXIMAB
     Dosage: 375 MG/M2, (IMMUNOCHEMOTHERAPY)
     Route: 065
  19. CYCLOPHOSPHAMIDE. [Suspect]
     Active Substance: CYCLOPHOSPHAMIDE
     Indication: DIFFUSE LARGE B-CELL LYMPHOMA
     Dosage: 750 MG/M2, UNK
     Route: 065
  20. VINBLASTINE [Suspect]
     Active Substance: VINBLASTINE
     Indication: DIFFUSE LARGE B-CELL LYMPHOMA
     Dosage: 10 MG, QD
     Route: 065
  21. PREDNISONE. [Suspect]
     Active Substance: PREDNISONE
     Dosage: UNK
  22. PREDNISOLONE. [Suspect]
     Active Substance: PREDNISOLONE
     Indication: DIFFUSE LARGE B-CELL LYMPHOMA
     Dosage: 1/CYCLE (8 CYCLES, RCHOP THERAPY BETWEEN JANUARY AND JUNE 2013)
     Route: 065
  23. CYTOSAR [Suspect]
     Active Substance: CYTARABINE
     Indication: DIFFUSE LARGE B-CELL LYMPHOMA
     Dosage: PER 1 CYCLE (O-IVAC IMMUNOCHEMOTHERAPY)
     Route: 065
  24. ENDOXAN [Suspect]
     Active Substance: CYCLOPHOSPHAMIDE
     Indication: DIFFUSE LARGE B-CELL LYMPHOMA
     Dosage: 750 MG/M2 PER 1 CYCLE (IMMUNOCHEMOTHERAPY)
     Route: 065
  25. CARBOPLATIN. [Concomitant]
     Active Substance: CARBOPLATIN
     Indication: DIFFUSE LARGE B-CELL LYMPHOMA
     Dosage: UNK
     Route: 065
  26. LIPOSOMAL PEGYLATED ANTHRACYCLINE (MYCOET) [Suspect]
     Active Substance: DOXORUBICIN HYDROCHLORIDE
     Indication: DIFFUSE LARGE B-CELL LYMPHOMA
     Dosage: UNK
  27. VINCRISTINE [Suspect]
     Active Substance: VINCRISTINE
     Indication: DIFFUSE LARGE B-CELL LYMPHOMA
     Dosage: 1/1 CYCLE (8 CYCLES, RCHOP THERAPY BETWEEN JANUARY AND JUNE 2013)
     Route: 065
  28. DEXAMETHASONE. [Concomitant]
     Active Substance: DEXAMETHASONE
     Indication: DIFFUSE LARGE B-CELL LYMPHOMA
     Dosage: 1/1 CYCLE (3 CYCLES OF ICE AS MOBILIZATION CHEMOTHERAPY)
     Route: 065
     Dates: start: 201402
  29. PREDNISONE. [Suspect]
     Active Substance: PREDNISONE
     Dosage: 100MG/DAY
     Route: 065
  30. OFATUMUMAB [Suspect]
     Active Substance: OFATUMUMAB
     Indication: DIFFUSE LARGE B-CELL LYMPHOMA
     Dosage: O-IVAC IMMUNOCHEMOTHERAPY
     Route: 065
  31. ETOPOSIDE. [Suspect]
     Active Substance: ETOPOSIDE
     Indication: DIFFUSE LARGE B-CELL LYMPHOMA
     Dosage: PER 1 CYCLE (O-IVAC IMMUNOCHEMOTHERAPY)
     Route: 065
  32. MELPHALAN. [Concomitant]
     Active Substance: MELPHALAN
     Indication: DIFFUSE LARGE B-CELL LYMPHOMA
     Dosage: CONDITIONING REGIMEN
     Route: 065
  33. MELPHALAN. [Concomitant]
     Active Substance: MELPHALAN
     Indication: STEM CELL TRANSPLANT
  34. MYCOPHENOLATE MOFETIL. [Concomitant]
     Active Substance: MYCOPHENOLATE MOFETIL
     Indication: ACUTE MOTOR-SENSORY AXONAL NEUROPATHY
     Dosage: UNK
     Route: 042
  35. CYTARABINE. [Concomitant]
     Active Substance: CYTARABINE
     Indication: DIFFUSE LARGE B-CELL LYMPHOMA
     Dosage: 1/1 CYCLE (3 CYCLES OF ICE AS MOBILIZATION CHEMOTHERAPY)
     Route: 065
     Dates: start: 201402

REACTIONS (8)
  - Bone marrow toxicity [Unknown]
  - Anaphylactic shock [Unknown]
  - Infection [Unknown]
  - Septic shock [Unknown]
  - Therapy partial responder [Unknown]
  - Pneumonia [Unknown]
  - Disease progression [Unknown]
  - Febrile neutropenia [Unknown]
